FAERS Safety Report 4491997-2 (Version None)
Quarter: 2004Q4

REPORT INFORMATION
  Report Type: 
  Country: None (occurrence: None)
  Receive Date: 20041101
  Receipt Date: 20041022
  Transmission Date: 20050328
  Serious: Yes (Other)
  Sender: FDA-Public Use
  Company Number: S04-USA-07061-01

PATIENT
  Age: 39 Year
  Sex: Male
  Weight: 102.5129 kg

DRUGS (3)
  1. LEXAPRO [Suspect]
     Indication: ANXIETY
     Dosage: 10 MG QD PO
     Route: 048
     Dates: start: 20020201, end: 20040901
  2. STRATTERA [Concomitant]
  3. NEXIUM [Concomitant]

REACTIONS (2)
  - AUTOIMMUNE THYROIDITIS [None]
  - WEIGHT INCREASED [None]
